FAERS Safety Report 10091003 (Version 2)
Quarter: 2014Q2

REPORT INFORMATION
  Report Type: Report from Study
  Country: US (occurrence: US)
  Receive Date: 20140421
  Receipt Date: 20140505
  Transmission Date: 20141212
  Serious: Yes (Other)
  Sender: FDA-Public Use
  Company Number: US-ABBVIE-14P-163-1224236-00

PATIENT
  Age: 40 Year
  Sex: Female

DRUGS (10)
  1. HUMIRA [Suspect]
     Indication: PSORIATIC ARTHROPATHY
     Dates: start: 20140110, end: 20140404
  2. CELEBREX [Concomitant]
     Indication: PSORIATIC ARTHROPATHY
  3. PREDNISONE [Concomitant]
     Indication: PSORIATIC ARTHROPATHY
     Dosage: DOSE: 1 OR 10 MG, PATIENT CANNOT REMEMBER
  4. LYRICA [Concomitant]
     Indication: PSORIATIC ARTHROPATHY
  5. FOLIC ACID [Concomitant]
     Indication: PRODUCT USED FOR UNKNOWN INDICATION
  6. METHOTREXATE [Concomitant]
     Indication: PSORIATIC ARTHROPATHY
     Route: 050
  7. RESTORIL [Concomitant]
     Indication: INSOMNIA
     Dosage: EVERY NIGHT AT BEDTIME
  8. ZANAFLEX [Concomitant]
     Indication: MUSCLE SPASMS
     Dosage: THREE TIMES DAILY
  9. NORCO [Concomitant]
     Indication: ARTHRALGIA
     Dosage: 1-2 DAILY, EVERY 4 HOURS, PRN
  10. XANAX [Concomitant]
     Indication: ANXIETY

REACTIONS (1)
  - Arthralgia [Not Recovered/Not Resolved]
